FAERS Safety Report 24338594 (Version 1)
Quarter: 2024Q3

REPORT INFORMATION
  Report Type: Spontaneous
  Country: US (occurrence: US)
  Receive Date: 20240919
  Receipt Date: 20240919
  Transmission Date: 20241017
  Serious: Yes (Other)
  Sender: CHEPLAPHARM
  Company Number: US-CHEPLA-2024011852

PATIENT
  Age: 66 Year
  Sex: Male

DRUGS (2)
  1. OLANZAPINE [Suspect]
     Active Substance: OLANZAPINE
     Indication: Product used for unknown indication
     Dates: start: 202407
  2. CLONAZEPAM [Suspect]
     Active Substance: CLONAZEPAM
     Dosage: DOSE DECREASED

REACTIONS (1)
  - Parkinsonism [Unknown]
